FAERS Safety Report 25586980 (Version 1)
Quarter: 2025Q3

REPORT INFORMATION
  Report Type: Spontaneous
  Country: US (occurrence: US)
  Receive Date: 20250721
  Receipt Date: 20250721
  Transmission Date: 20251020
  Serious: No
  Sender: Phathom Pharmaceuticals
  Company Number: US-PHATHOM PHARMACEUTICALS INC.-2025PHT01205

PATIENT
  Sex: Female

DRUGS (5)
  1. VOQUEZNA [Suspect]
     Active Substance: VONOPRAZAN FUMARATE
     Dosage: 20 MG, 1X/DAY
     Route: 048
  2. DESVENLAFAXINE [Concomitant]
     Active Substance: DESVENLAFAXINE
  3. BENZTROPINE [Concomitant]
     Active Substance: BENZTROPINE
  4. LAMOTRIGINE [Concomitant]
     Active Substance: LAMOTRIGINE
  5. QUETIAPINE [Concomitant]
     Active Substance: QUETIAPINE

REACTIONS (3)
  - Urine output decreased [Unknown]
  - Paraesthesia [Unknown]
  - Dizziness [Unknown]
